FAERS Safety Report 7392790-3 (Version None)
Quarter: 2011Q2

REPORT INFORMATION
  Report Type: 
  Country: None (occurrence: None)
  Receive Date: 20110404
  Receipt Date: 20110321
  Transmission Date: 20111010
  Serious: Yes (Other)
  Sender: FDA-Public Use
  Company Number: PHHY2011US17799

PATIENT
  Sex: Male
  Weight: 63 kg

DRUGS (7)
  1. ZOFRAN [Concomitant]
  2. ACYCLOVIR [Concomitant]
     Dosage: UNK
  3. EXJADE [Suspect]
     Indication: CHRONIC MYELOID LEUKAEMIA
     Dosage: 500 MG, BID
     Route: 048
     Dates: start: 20110110, end: 20110302
  4. CENTRUM SILVER [Concomitant]
  5. GABAPENTIN [Concomitant]
  6. AMITRIPTYLINE [Concomitant]
  7. CIPRO [Concomitant]

REACTIONS (2)
  - NEOPLASM RECURRENCE [None]
  - BLOOD CREATININE INCREASED [None]
